FAERS Safety Report 4724516-3 (Version None)
Quarter: 2005Q3

REPORT INFORMATION
  Report Type: 
  Country: None (occurrence: None)
  Receive Date: 20050726
  Receipt Date: 20050414
  Transmission Date: 20060218
  Serious: Yes (Hospitalization)
  Sender: FDA-Public Use
  Company Number: US-BOEHRINGER INGELHEIM PHARMACEUTICALS, INC.-2005-BP-06151BP

PATIENT
  Sex: Female

DRUGS (4)
  1. MIRAPEX [Suspect]
     Indication: NEUROLOGICAL SYMPTOM
     Route: 048
     Dates: start: 20050312, end: 20050325
  2. MIRAPEX [Suspect]
     Route: 048
     Dates: start: 20010501, end: 20050310
  3. AVIANE-21 [Concomitant]
     Dosage: QD
  4. GABAPENTIN [Concomitant]
     Dosage: QD

REACTIONS (10)
  - ABNORMAL BEHAVIOUR [None]
  - EMOTIONAL DISORDER [None]
  - FEELING ABNORMAL [None]
  - HALLUCINATION [None]
  - HALLUCINATION, AUDITORY [None]
  - HALLUCINATION, VISUAL [None]
  - MENTAL DISORDER [None]
  - SLEEP WALKING [None]
  - THYROID DISORDER [None]
  - UTERINE LEIOMYOMA [None]
